FAERS Safety Report 10269063 (Version 1)
Quarter: 2014Q2

REPORT INFORMATION
  Report Type: Spontaneous
  Country: IN (occurrence: IN)
  Receive Date: 20140630
  Receipt Date: 20140630
  Transmission Date: 20141212
  Serious: Yes (Other)
  Sender: FDA-Public Use
  Company Number: PHHY2014IN076624

PATIENT
  Age: 35 Year
  Sex: Female

DRUGS (8)
  1. OLANZAPINE [Suspect]
     Indication: MANIA
     Dosage: 20 MG, UNK
  2. RISPERIDONE [Suspect]
     Indication: MANIA
     Dosage: 2 MG, UNK
  3. RISPERIDONE [Suspect]
     Dosage: 20 MG, UNK
  4. LITHIUM [Suspect]
     Indication: MANIA
     Dosage: 900 MG, UNK
  5. VITAMIN E [Suspect]
     Dosage: 400-600 MG, PER DAY
  6. VITAMIN E [Suspect]
     Dosage: 1200 MG, UNK
  7. CLONAZEPAM [Suspect]
     Indication: MANIA
     Dosage: 4 MG, UNK
  8. QUETIAPINE [Suspect]
     Indication: MANIA
     Dosage: 600 MG, UNK

REACTIONS (6)
  - Tardive dyskinesia [Not Recovered/Not Resolved]
  - Dyskinesia [Not Recovered/Not Resolved]
  - Sedation [Unknown]
  - Blood glucose abnormal [Unknown]
  - Maternal exposure during pregnancy [Unknown]
  - Drug ineffective [Unknown]
